FAERS Safety Report 6425835-5 (Version None)
Quarter: 2009Q4

REPORT INFORMATION
  Report Type: 
  Country: None (occurrence: None)
  Receive Date: 20091103
  Receipt Date: 20090211
  Transmission Date: 20100525
  Serious: No
  Sender: FDA-Public Use
  Company Number: US-ABBOTT-09P-163-0503238-00

PATIENT
  Sex: Female
  Weight: 62.198 kg

DRUGS (2)
  1. BIAXIN [Suspect]
     Indication: STAPHYLOCOCCAL INFECTION
     Route: 048
     Dates: start: 20081206, end: 20081209
  2. LEVAQUIN [Concomitant]
     Indication: STAPHYLOCOCCAL INFECTION
     Route: 048
     Dates: start: 20081209

REACTIONS (1)
  - RASH [None]
